FAERS Safety Report 22793562 (Version 2)
Quarter: 2023Q4

REPORT INFORMATION
  Report Type: Spontaneous
  Country: ES (occurrence: ES)
  Receive Date: 20230807
  Receipt Date: 20231214
  Transmission Date: 20240109
  Serious: Yes (Other)
  Sender: FDA-Public Use
  Company Number: ES-SANDOZ-SDZ2023ES008053

PATIENT
  Age: 59 Year
  Sex: Female

DRUGS (1)
  1. FINGOLIMOD [Suspect]
     Active Substance: FINGOLIMOD
     Indication: Multiple sclerosis
     Dosage: 5 MCG/KG/DAY
     Route: 065

REACTIONS (2)
  - Leukoencephalopathy [Unknown]
  - Condition aggravated [Unknown]
